FAERS Safety Report 7925678-7 (Version None)
Quarter: 2011Q4

REPORT INFORMATION
  Report Type: 
  Country: None (occurrence: None)
  Receive Date: 20111118
  Receipt Date: 20110411
  Transmission Date: 20120403
  Serious: No
  Sender: FDA-Public Use
  Company Number: US-AMGEN-USASP2011019269

PATIENT
  Age: 46 Year
  Sex: Male

DRUGS (1)
  1. ENBREL [Suspect]
     Indication: PSORIASIS
     Dates: start: 20110315, end: 20110409

REACTIONS (6)
  - RHINORRHOEA [None]
  - SINUS HEADACHE [None]
  - COUGH [None]
  - INCREASED UPPER AIRWAY SECRETION [None]
  - CHEST DISCOMFORT [None]
  - OROPHARYNGEAL PAIN [None]
